FAERS Safety Report 11292609 (Version 1)
Quarter: 2015Q2

REPORT INFORMATION
  Report Type: Spontaneous
  Country: US (occurrence: None)
  Receive Date: 20150623
  Receipt Date: 20150623
  Transmission Date: 20150821
  Serious: Yes (Other)
  Sender: FDA-Public Use
  Company Number: RB-76653-2015

PATIENT
  Age: 24 Year
  Sex: Female

DRUGS (1)
  1. DEXTROMETHORPHAN W/GUAIFENESIN 1200 MG (RB (RECKITT BENCKISER)) [Suspect]
     Active Substance: DEXTROMETHORPHAN\GUAIFENESIN
     Indication: COUGH
     Dosage: DRUG WAS LAST USED ON 18-APR-2015 AT 07:00PM UNKNOWN)
     Dates: start: 20150417, end: 20150418

REACTIONS (4)
  - Hallucination, visual [None]
  - Diarrhoea [None]
  - Drug ineffective [None]
  - Cough [None]

NARRATIVE: CASE EVENT DATE: 20150417
